FAERS Safety Report 5535157-2 (Version None)
Quarter: 2007Q4

REPORT INFORMATION
  Report Type: 
  Country: None (occurrence: None)
  Receive Date: 20071206
  Receipt Date: 20071204
  Transmission Date: 20080405
  Serious: Yes (Life-Threatening, Other)
  Sender: FDA-Public Use
  Company Number: PHBS2007MY20309

PATIENT
  Age: 6 Year
  Sex: Female

DRUGS (5)
  1. CATAFLAM [Suspect]
  2. CLARITIN [Concomitant]
  3. POLARAMINE [Concomitant]
  4. PARACETAMOL [Concomitant]
  5. ROCEPHIN [Suspect]
     Indication: ACUTE TONSILLITIS
     Dosage: 1 G, ONCE/SINGLE
     Dates: start: 20071031, end: 20071031

REACTIONS (13)
  - ABDOMINAL PAIN [None]
  - ANAPHYLACTIC SHOCK [None]
  - BLOOD PRESSURE SYSTOLIC DECREASED [None]
  - BRACHIAL PULSE DECREASED [None]
  - CIRCULATORY COLLAPSE [None]
  - LOSS OF CONSCIOUSNESS [None]
  - LYMPHOCYTE COUNT INCREASED [None]
  - MONOCYTE COUNT INCREASED [None]
  - NEUTROPHIL COUNT INCREASED [None]
  - PULSE ABSENT [None]
  - TREMOR [None]
  - VOMITING [None]
  - WHITE BLOOD CELL COUNT INCREASED [None]
